FAERS Safety Report 5060811-9 (Version None)
Quarter: 2006Q3

REPORT INFORMATION
  Report Type: 
  Country: None (occurrence: None)
  Receive Date: 20060725
  Receipt Date: 20060715
  Transmission Date: 20061208
  Serious: Yes (Hospitalization)
  Sender: FDA-Public Use
  Company Number: PHEH2006US09168

PATIENT
  Age: 23 Year
  Sex: Male
  Weight: 54 kg

DRUGS (1)
  1. EXJADE [Suspect]
     Indication: SICKLE CELL ANAEMIA
     Dosage: 1000 MG, QD
     Route: 048
     Dates: start: 20060315, end: 20060713

REACTIONS (2)
  - JAUNDICE [None]
  - SICKLE CELL ANAEMIA WITH CRISIS [None]
